FAERS Safety Report 7111034-0 (Version None)
Quarter: 2010Q4

REPORT INFORMATION
  Report Type: 
  Country: None (occurrence: None)
  Receive Date: 20101118
  Receipt Date: 20091020
  Transmission Date: 20110411
  Serious: Yes (Hospitalization)
  Sender: FDA-Public Use
  Company Number: US-TEVA-212849USA

PATIENT
  Sex: Female
  Weight: 117.13 kg

DRUGS (3)
  1. ALBUTEROL SULFATE AUTOHALER [Suspect]
     Indication: ALLERGY PROPHYLAXIS
     Dosage: 2 PUFFS
     Route: 055
     Dates: start: 20090930
  2. FUROSEMIDE [Concomitant]
     Indication: OEDEMA PERIPHERAL
  3. POTASSIUM CHLORIDE [Concomitant]

REACTIONS (3)
  - CHEST DISCOMFORT [None]
  - COUGH [None]
  - WHEEZING [None]
